FAERS Safety Report 12716539 (Version 1)
Quarter: 2016Q3

REPORT INFORMATION
  Report Type: Spontaneous
  Country: US (occurrence: US)
  Receive Date: 20160906
  Receipt Date: 20160906
  Transmission Date: 20161109
  Serious: Yes (Hospitalization, Other)
  Sender: FDA-Public Use
  Company Number: US-AMGEN-USASP2016115379

PATIENT
  Age: 54 Year
  Sex: Female

DRUGS (6)
  1. PROLIA [Suspect]
     Active Substance: DENOSUMAB
     Indication: OSTEOPOROSIS
     Dosage: UNK
     Route: 065
  2. CALCIUM [Concomitant]
     Active Substance: CALCIUM
     Dosage: 1700 MG, UNK
  3. INDOCIN [Concomitant]
     Active Substance: INDOMETHACIN\INDOMETHACIN SODIUM
     Indication: RENAL DISORDER
  4. DILTIA [Concomitant]
     Indication: VASCULITIS
  5. MEVACOR [Concomitant]
     Active Substance: LOVASTATIN
  6. PLAQUENIL [Concomitant]
     Active Substance: HYDROXYCHLOROQUINE SULFATE

REACTIONS (5)
  - Bone disorder [Unknown]
  - Humerus fracture [Unknown]
  - Central venous catheterisation [Unknown]
  - Limb injury [Unknown]
  - Haemorrhage [Unknown]
